FAERS Safety Report 8452645-X (Version None)
Quarter: 2012Q2

REPORT INFORMATION
  Report Type: 
  Country: None (occurrence: None)
  Receive Date: 20120620
  Receipt Date: 20120615
  Transmission Date: 20120825
  Serious: No
  Sender: FDA-Public Use
  Company Number: US-BAYER-2012-060315

PATIENT
  Age: 46 Year
  Sex: Male
  Weight: 136 kg

DRUGS (2)
  1. ALEVE (CAPLET) [Suspect]
     Indication: TOOTHACHE
     Dosage: 2 DF, BID
     Route: 048
     Dates: start: 20120610
  2. LISINOPRIL [Concomitant]

REACTIONS (1)
  - TOOTHACHE [None]
